FAERS Safety Report 15620162 (Version 3)
Quarter: 2019Q1

REPORT INFORMATION
  Report Type: Report from Study
  Country: JP (occurrence: JP)
  Receive Date: 20181115
  Receipt Date: 20190109
  Transmission Date: 20190417
  Serious: Yes (Death)
  Sender: FDA-Public Use
  Company Number: JP-INCYTE CORPORATION-2018IN011549

PATIENT

DRUGS (9)
  1. JAKAVI [Suspect]
     Active Substance: RUXOLITINIB
     Indication: PRIMARY MYELOFIBROSIS
     Dosage: 50 MG, BID
     Route: 048
     Dates: start: 20141010, end: 20141023
  2. JAKAVI [Suspect]
     Active Substance: RUXOLITINIB
     Dosage: 20 MG, BID
     Route: 048
     Dates: start: 20150123, end: 20150305
  3. LASIX [Concomitant]
     Active Substance: FUROSEMIDE
     Indication: PRIMARY MYELOFIBROSIS
     Dosage: 40 MG, UNK
     Route: 048
  4. JAKAVI [Suspect]
     Active Substance: RUXOLITINIB
     Dosage: 40MG, BID
     Route: 048
     Dates: start: 20141024, end: 20141204
  5. JAKAVI [Suspect]
     Active Substance: RUXOLITINIB
     Dosage: 10 MG, BID
     Route: 048
     Dates: start: 20141205, end: 20150122
  6. EXJADE [Concomitant]
     Active Substance: DEFERASIROX
     Indication: PRIMARY MYELOFIBROSIS
     Dosage: 500 MG, UNK
     Route: 048
     Dates: end: 20180210
  7. JAKAVI [Suspect]
     Active Substance: RUXOLITINIB
     Dosage: 20 MG, BID
     Route: 048
     Dates: start: 20150529
  8. JAKAVI [Suspect]
     Active Substance: RUXOLITINIB
     Dosage: 15 MG, BID
     Route: 048
     Dates: start: 20180210
  9. LASIX [Concomitant]
     Active Substance: FUROSEMIDE
     Indication: PRIMARY MYELOFIBROSIS
     Dosage: 40 MG, UNK
     Route: 048

REACTIONS (1)
  - Primary myelofibrosis [Fatal]
